FAERS Safety Report 10907908 (Version 1)
Quarter: 2015Q1

REPORT INFORMATION
  Report Type: Spontaneous
  Country: US (occurrence: US)
  Receive Date: 20150312
  Receipt Date: 20150312
  Transmission Date: 20150721
  Serious: No
  Sender: FDA-Public Use
  Company Number: US-INCYTE CORPORATION-2015IN000035

PATIENT
  Sex: Female

DRUGS (16)
  1. BUTALBITAL, ACETAMINOPHEN, AND CAFFEINE [Concomitant]
     Active Substance: ACETAMINOPHEN\BUTALBITAL\CAFFEINE
  2. LEVOTHYROXINE [Concomitant]
     Active Substance: LEVOTHYROXINE
  3. MULTIVITAMIN AND MINERAL [Concomitant]
  4. MICARDIS [Concomitant]
     Active Substance: TELMISARTAN
  5. WARFARIN [Concomitant]
     Active Substance: WARFARIN
  6. KEPPRA [Concomitant]
     Active Substance: LEVETIRACETAM
  7. VITAMIN D3 [Concomitant]
     Active Substance: CHOLECALCIFEROL
  8. OMEPRAZOLE. [Concomitant]
     Active Substance: OMEPRAZOLE
  9. ASPIRIN. [Concomitant]
     Active Substance: ASPIRIN
  10. FUROSEMIDE. [Concomitant]
     Active Substance: FUROSEMIDE
  11. JAKAFI [Suspect]
     Active Substance: RUXOLITINIB
     Indication: MYELOFIBROSIS
     Dosage: 10 MG, BID
     Route: 048
     Dates: start: 20141025
  12. CALCIUM [Concomitant]
     Active Substance: CALCIUM
  13. METOPROLOL [Concomitant]
     Active Substance: METOPROLOL
  14. ZOCOR [Concomitant]
     Active Substance: SIMVASTATIN
  15. JAKAFI [Suspect]
     Active Substance: RUXOLITINIB
     Dosage: 10 MG, QD
     Route: 048
     Dates: start: 20150105
  16. CLINDAMYCIN [Concomitant]
     Active Substance: CLINDAMYCIN\CLINDAMYCIN PHOSPHATE

REACTIONS (4)
  - Migraine [Unknown]
  - Headache [Unknown]
  - Platelet count increased [Unknown]
  - Dyspnoea [Unknown]
